FAERS Safety Report 18042367 (Version 1)
Quarter: 2020Q3

REPORT INFORMATION
  Report Type: Spontaneous
  Country: US (occurrence: US)
  Receive Date: 20200716
  Receipt Date: 20200716
  Transmission Date: 20201103
  Serious: Yes (Life-Threatening, Hospitalization)
  Sender: FDA-Public Use
  Company Number: None

PATIENT
  Age: 62 Year
  Sex: Male

DRUGS (2)
  1. NAFCILLIN (NAFCILLIN NA 2GM/100ML INJ,BAG) [Suspect]
     Active Substance: NAFCILLIN SODIUM
     Indication: BURSITIS INFECTIVE
     Dates: end: 20190826
  2. PIPERACILLIN/TAZOBACTAM (PIPERACILLIN NA 3GM/TAZOBACTAM 0.375GM/50ML INJ,BAG,50ML) [Suspect]
     Active Substance: PIPERACILLIN SODIUM\TAZOBACTAM SODIUM
     Dates: end: 20190826

REACTIONS (2)
  - Nephritis [None]
  - Acute kidney injury [None]

NARRATIVE: CASE EVENT DATE: 20190826
